FAERS Safety Report 14685557 (Version 1)
Quarter: 2018Q1

REPORT INFORMATION
  Report Type: Spontaneous
  Country: CA (occurrence: CA)
  Receive Date: 20180327
  Receipt Date: 20180327
  Transmission Date: 20180509
  Serious: Yes (Life-Threatening, Other)
  Sender: FDA-Public Use
  Company Number: PHHY2018CA052714

PATIENT
  Age: 54 Year
  Sex: Male

DRUGS (2)
  1. DESFERAL [Suspect]
     Active Substance: DEFEROXAMINE MESYLATE
     Indication: THALASSAEMIA BETA
     Dosage: UNK, SMALL DOSE
     Route: 042
  2. DESFERAL [Suspect]
     Active Substance: DEFEROXAMINE MESYLATE
     Dosage: UNK
     Route: 058

REACTIONS (6)
  - Cardiac disorder [Unknown]
  - Osteoporosis [Unknown]
  - Neuropathy peripheral [Unknown]
  - Asthma [Unknown]
  - Feeling abnormal [Unknown]
  - Diabetes mellitus [Unknown]
